FAERS Safety Report 5563011-9 (Version None)
Quarter: 2007Q4

REPORT INFORMATION
  Report Type: 
  Country: None (occurrence: None)
  Receive Date: 20071217
  Receipt Date: 20071207
  Transmission Date: 20080405
  Serious: Yes (Death)
  Sender: FDA-Public Use
  Company Number: DK-AVENTIS-200721240GDDC

PATIENT
  Age: 72 Year
  Sex: Female

DRUGS (5)
  1. MINIRIN [Suspect]
     Route: 042
     Dates: start: 20070913, end: 20070913
  2. CYCLOCAPRON [Suspect]
     Route: 042
     Dates: start: 20070913
  3. FIBROGAMMIN [Suspect]
     Dates: start: 20070913
  4. PLASMA [Concomitant]
  5. WHOLE BLOOD [Concomitant]

REACTIONS (4)
  - ACUTE RESPIRATORY DISTRESS SYNDROME [None]
  - BRAIN STEM INFARCTION [None]
  - PULMONARY EMBOLISM [None]
  - THROMBOSIS [None]
